FAERS Safety Report 8432296-3 (Version None)
Quarter: 2012Q2

REPORT INFORMATION
  Report Type: 
  Country: None (occurrence: None)
  Receive Date: 20120613
  Receipt Date: 20120608
  Transmission Date: 20120825
  Serious: Yes (Hospitalization)
  Sender: FDA-Public Use
  Company Number: PHHY2012CA046017

PATIENT
  Sex: Female

DRUGS (9)
  1. MYFORTIC [Suspect]
     Indication: LUPUS NEPHRITIS
     Dosage: 360 MG, BID
     Route: 048
     Dates: start: 20111113, end: 20120120
  2. ADALAT [Concomitant]
     Dosage: UNK UKN, UNK
  3. PANTOPRAZOLE SODIUM [Concomitant]
     Dosage: 40 UKN, UNK
  4. HYDROXYCHLOROQUINE SULFATE [Concomitant]
     Dosage: 400 UKN, UNK
  5. PREDNISONE TAB [Concomitant]
     Dosage: 60 UKN, UNK
  6. VITAMIN D [Concomitant]
     Dosage: UNK UKN, UNK
  7. IRON [Concomitant]
     Dosage: 300 UKN, UNK
  8. RAMIPRIL [Concomitant]
     Dosage: 10 UKN, UNK
  9. CALCIUM [Concomitant]
     Dosage: 1250 UKN, UNK

REACTIONS (17)
  - GENITAL ULCERATION [None]
  - MOUTH HAEMORRHAGE [None]
  - STEVENS-JOHNSON SYNDROME [None]
  - SWELLING FACE [None]
  - EPISTAXIS [None]
  - THERMAL BURN [None]
  - SKIN EXFOLIATION [None]
  - LOWER LIMB FRACTURE [None]
  - EAR HAEMORRHAGE [None]
  - VAGINAL HAEMORRHAGE [None]
  - RASH GENERALISED [None]
  - ERYTHEMA [None]
  - EYE SWELLING [None]
  - ALOPECIA [None]
  - PAIN [None]
  - LIP SWELLING [None]
  - DRUG HYPERSENSITIVITY [None]
